FAERS Safety Report 9759916 (Version 2)
Quarter: 2013Q4

REPORT INFORMATION
  Report Type: Spontaneous
  Country: US (occurrence: US)
  Receive Date: 20131216
  Receipt Date: 20131216
  Transmission Date: 20140711
  Serious: Yes (Death, Other)
  Sender: FDA-Public Use
  Company Number: US-CELGENEUS-163-POMAL-13040169

PATIENT
  Age: 52 Year
  Sex: Male
  Weight: 97.61 kg

DRUGS (2)
  1. POMALYST [Suspect]
     Indication: PLASMA CELL MYELOMA
     Dosage: 4 MILLIGRAM
     Route: 048
     Dates: start: 20130218, end: 2013
  2. POMALYST [Suspect]
     Dosage: 3 MILLIGRAM
     Route: 048
     Dates: start: 201303, end: 2013

REACTIONS (5)
  - Death [Fatal]
  - Cardiac disorder [Unknown]
  - Oedema [Unknown]
  - Dyspnoea [Unknown]
  - Plasma cell myeloma [Unknown]
